FAERS Safety Report 12933439 (Version 1)
Quarter: 2016Q4

REPORT INFORMATION
  Report Type: Report from Study
  Country: US (occurrence: US)
  Receive Date: 20161111
  Receipt Date: 20161111
  Transmission Date: 20170207
  Serious: Yes (Hospitalization)
  Sender: FDA-Public Use
  Company Number: US-EISAI MEDICAL RESEARCH-EC-2016-021595

PATIENT
  Sex: Male
  Weight: 99 kg

DRUGS (6)
  1. LENVIMA [Suspect]
     Active Substance: LENVATINIB
     Indication: THYROID CANCER
     Route: 048
     Dates: start: 20160926, end: 2016
  2. SYNTHROID [Concomitant]
     Active Substance: LEVOTHYROXINE SODIUM
  3. VITAMIN C [Concomitant]
     Active Substance: ASCORBIC ACID
  4. GLUCOSAMINE [Concomitant]
     Active Substance: GLUCOSAMINE
  5. OXYCODONE [Concomitant]
     Active Substance: OXYCODONE
  6. FISH OIL [Concomitant]
     Active Substance: FISH OIL

REACTIONS (4)
  - Dehydration [Unknown]
  - Stomatitis [Unknown]
  - Pneumonia aspiration [Unknown]
  - Hypotension [Unknown]

NARRATIVE: CASE EVENT DATE: 2016
